FAERS Safety Report 6005327-8 (Version None)
Quarter: 2008Q4

REPORT INFORMATION
  Report Type: 
  Country: None (occurrence: None)
  Receive Date: 20081216
  Receipt Date: 20081203
  Transmission Date: 20090506
  Serious: Yes (Other)
  Sender: FDA-Public Use
  Company Number: US-GENENTECH-273521

PATIENT

DRUGS (5)
  1. BEVACIZUMAB [Suspect]
     Indication: CERVIX CARCINOMA
     Dosage: 10 MG/KG, D1,15,29
     Route: 042
     Dates: start: 20080804
  2. DEXTROSE/SALINE [Concomitant]
     Indication: PREMEDICATION
     Dosage: UNK
     Dates: start: 20080804
  3. POTASSIUM CHLORIDE [Concomitant]
     Indication: PREMEDICATION
     Dosage: UNK
     Dates: start: 20080804
  4. DEXAMETHASONE [Concomitant]
     Indication: PREMEDICATION
     Dosage: 12 MG, UNK
     Dates: start: 20080804
  5. CISPLATIN [Concomitant]
     Indication: CERVIX CARCINOMA
     Dosage: 40 MG/M2, 1/WEEKX6 WEEKS DURING EXTERNAL BEAM RADIOTHERAPY
     Route: 042
     Dates: start: 20080804

REACTIONS (1)
  - HYPERGLYCAEMIA [None]
